APPROVED DRUG PRODUCT: EUTHYROX
Active Ingredient: LEVOTHYROXINE SODIUM
Strength: 0.3MG
Dosage Form/Route: TABLET;ORAL
Application: N021292 | Product #012
Applicant: EMD SERONO INC
Approved: May 31, 2002 | RLD: No | RS: No | Type: DISCN